FAERS Safety Report 21047159 (Version 1)
Quarter: 2022Q3

REPORT INFORMATION
  Report Type: Spontaneous
  Country: US (occurrence: None)
  Receive Date: 20220705
  Receipt Date: 20220705
  Transmission Date: 20221027
  Serious: Yes (Other)
  Sender: FDA-Public Use
  Company Number: None

PATIENT
  Age: 60 Year
  Sex: Male

DRUGS (1)
  1. CAPECITABINE [Suspect]
     Active Substance: CAPECITABINE
     Dosage: 2500MG BID ORAL
     Route: 048
     Dates: start: 202205

REACTIONS (4)
  - Abdominal pain [None]
  - Muscle spasms [None]
  - Diarrhoea [None]
  - Therapy cessation [None]

NARRATIVE: CASE EVENT DATE: 20220705
